FAERS Safety Report 8856943 (Version 2)
Quarter: 2013Q1

REPORT INFORMATION
  Report Type: Spontaneous
  Country: NL (occurrence: None)
  Receive Date: 20121019
  Receipt Date: 20121031
  Transmission Date: 20140127
  Serious: Yes (Disabling, Other)
  Sender: FDA-Public Use
  Company Number: DSA_60254_2012

PATIENT
  Age: 54 Year
  Sex: Female

DRUGS (3)
  1. FLAGYL [Suspect]
     Indication: GIARDIASIS
     Dosage: (DF ORAL)
     Route: 048
     Dates: start: 20050324, end: 20050329
  2. DIAZEPAM [Concomitant]
  3. CODEINE [Concomitant]

REACTIONS (14)
  - Sleep disorder [None]
  - Dystonia [None]
  - Disturbance in attention [None]
  - Nervous system disorder [None]
  - Muscle spasms [None]
  - Pain in extremity [None]
  - Headache [None]
  - Hallucination [None]
  - Confusional state [None]
  - Abdominal distension [None]
  - Local swelling [None]
  - Condition aggravated [None]
  - Chills [None]
  - Angina pectoris [None]
